FAERS Safety Report 9606535 (Version 1)
Quarter: 2013Q4

REPORT INFORMATION
  Report Type: Spontaneous
  Country: US (occurrence: US)
  Receive Date: 20131008
  Receipt Date: 20131008
  Transmission Date: 20140711
  Serious: No
  Sender: FDA-Public Use
  Company Number: US-AMGEN-USASP2013054459

PATIENT
  Age: 60 Year
  Sex: Female

DRUGS (8)
  1. PROLIA [Suspect]
     Indication: OSTEOPOROSIS POSTMENOPAUSAL
     Dosage: UNK
     Route: 065
     Dates: start: 201203
  2. CELLCEPT                           /01275102/ [Concomitant]
     Dosage: 500 MG, UNK
  3. PREDNISONE [Concomitant]
     Dosage: 7.5 MG, UNK
  4. CALCITRIOL [Concomitant]
  5. LINUM USITATISSIMUM SEED [Concomitant]
  6. BABY ASPIRIN [Concomitant]
  7. VITAMIN D3 [Concomitant]
     Dosage: 1200 MG, QD
  8. CRESTOR [Concomitant]

REACTIONS (3)
  - Dry skin [Recovered/Resolved]
  - Skin exfoliation [Recovered/Resolved]
  - Pain of skin [Recovered/Resolved]
